FAERS Safety Report 4584437-6 (Version None)
Quarter: 2005Q1

REPORT INFORMATION
  Report Type: 
  Country: None (occurrence: None)
  Receive Date: 20050125
  Receipt Date: 20041110
  Transmission Date: 20050727
  Serious: No
  Sender: FDA-Public Use
  Company Number: USA041183779

PATIENT
  Age: 80 Year
  Sex: Female

DRUGS (13)
  1. FORTEO [Suspect]
     Indication: OSTEOPOROSIS
     Dates: start: 20041028
  2. NEXIUM [Concomitant]
  3. ZOCOR (SIMVASTATIN RATIOPHARM) [Concomitant]
  4. APO-METOPROLOL (METOPROLOL TARTRATE) [Concomitant]
  5. EXCEDRIN (MIGRAINE) [Concomitant]
  6. MULTI-VITAMIN [Concomitant]
  7. CALCIUM CITRATE WITH VITAMIN D [Concomitant]
  8. WATER PILLS [Concomitant]
  9. DIURETIC [Concomitant]
  10. POTASSIUM CHLORIDE [Concomitant]
  11. BEXTRA [Concomitant]
  12. IBUPROFEN [Concomitant]
  13. MORFIN EPIDURAL (MORPHINE HYDROCHLORIDE) [Concomitant]

REACTIONS (2)
  - MUSCULOSKELETAL STIFFNESS [None]
  - PAIN [None]
